FAERS Safety Report 7132254-5 (Version None)
Quarter: 2010Q4

REPORT INFORMATION
  Report Type: 
  Country: None (occurrence: None)
  Receive Date: 20101202
  Receipt Date: 20101118
  Transmission Date: 20110411
  Serious: Yes (Death, Hospitalization)
  Sender: FDA-Public Use
  Company Number: PHHO2010NL02309

PATIENT
  Sex: Female

DRUGS (44)
  1. EXELON EXELON+SOL [Suspect]
     Indication: DELIRIUM
     Dosage: 1.5 MG, QD
     Route: 048
     Dates: start: 20091111
  2. EXELON EXELON+SOL [Suspect]
     Dosage: 1.5 MG, BID
     Route: 048
     Dates: start: 20091112
  3. EXELON EXELON+SOL [Suspect]
     Dosage: 1.5 MG, BID
     Route: 048
     Dates: start: 20091113
  4. EXELON EXELON+SOL [Suspect]
     Dosage: 1.5 MG, QD
     Route: 048
     Dates: start: 20091114
  5. EXELON EXELON+SOL [Suspect]
     Dosage: 3 MG, QD
     Route: 048
     Dates: start: 20091114
  6. EXELON EXELON+SOL [Suspect]
     Dosage: 3 MG, BID
     Route: 048
     Dates: start: 20091115
  7. EXELON EXELON+SOL [Suspect]
     Dosage: 3 MG, BID
     Route: 048
     Dates: start: 20091116
  8. EXELON EXELON+SOL [Suspect]
     Dosage: 3 MG, QD
     Route: 048
     Dates: start: 20091117
  9. EXELON EXELON+SOL [Suspect]
     Dosage: 4.5 MG, QD
     Route: 048
     Dates: start: 20091117
  10. EXELON EXELON+SOL [Suspect]
     Dosage: 4.5 MG, BID
     Route: 048
     Dates: start: 20091118
  11. EXELON EXELON+SOL [Suspect]
     Dosage: 4.5 MG, QD
     Route: 048
     Dates: start: 20091119
  12. SUFENTANIL CITRATE [Concomitant]
     Indication: SEDATION
     Dosage: UNK
  13. DOBUTAMINE [Concomitant]
  14. NOREPINEPHRINE [Concomitant]
  15. AMIODARONE [Concomitant]
  16. ERYTHROMYCINE [Concomitant]
  17. VANCOMYCIN [Concomitant]
  18. GENTAMICIN [Concomitant]
  19. CHLORTHALIDONE [Concomitant]
  20. HYPROMELLOSE [Concomitant]
  21. PARACETAMOL [Concomitant]
  22. ETOMIDATE [Concomitant]
  23. FLUCONAZOLE [Concomitant]
  24. FUROSEMIDE [Concomitant]
  25. GLUTAMINE [Concomitant]
  26. TAZOCIN [Concomitant]
  27. CEFTRIAXONE [Concomitant]
  28. SALBUTAMOL W/IPRATROPIUM [Concomitant]
  29. FLUIMUCIL [Concomitant]
  30. POTASSIUM CHLORIDE [Concomitant]
  31. LEVOTHYROXINE [Concomitant]
  32. MAGNESIUM HYDROXIDE [Concomitant]
  33. METOPROLOL SUCCINATE [Concomitant]
  34. MORPHINE [Concomitant]
  35. DROPERIDOL [Concomitant]
  36. HALOPERIDOL [Concomitant]
  37. HYDROCORTISONE [Concomitant]
  38. REGULAR INSULIN [Concomitant]
  39. METRONIDAZOL ^ALPHARMA^ [Concomitant]
  40. SALBUTAMOL [Concomitant]
  41. SOTALOL [Concomitant]
  42. SPIRONOLACTONE [Concomitant]
  43. PROPOFOL [Concomitant]
  44. ROCURONIUM BROMIDE [Concomitant]

REACTIONS (7)
  - ABDOMINAL SEPSIS [None]
  - ABNORMAL FAECES [None]
  - MULTI-ORGAN FAILURE [None]
  - POST PROCEDURAL COMPLICATION [None]
  - SEPSIS [None]
  - SURGERY [None]
  - UTERINE CANCER [None]
